FAERS Safety Report 22156553 (Version 1)
Quarter: 2023Q1

REPORT INFORMATION
  Report Type: Spontaneous
  Country: US (occurrence: US)
  Receive Date: 20230330
  Receipt Date: 20230330
  Transmission Date: 20230417
  Serious: No
  Sender: FDA-Public Use
  Company Number: US-BAYER-2023A042082

PATIENT
  Age: 88 Year
  Sex: Female

DRUGS (1)
  1. MIRALAX [Suspect]
     Active Substance: POLYETHYLENE GLYCOL 3350
     Indication: Gastrointestinal disorder
     Dosage: 2 TEASPOONS AND MIX IT WITH ALMOST 8OZ OF WATER
     Route: 048

REACTIONS (1)
  - Product use issue [Unknown]
